FAERS Safety Report 5920228-9 (Version None)
Quarter: 2008Q4

REPORT INFORMATION
  Report Type: 
  Country: None (occurrence: None)
  Receive Date: 20081016
  Receipt Date: 20080715
  Transmission Date: 20090506
  Serious: No
  Sender: FDA-Public Use
  Company Number: A0735593A

PATIENT
  Age: 19 Month
  Sex: Female
  Weight: 11.8 kg

DRUGS (1)
  1. CEFUROXIME AXETIL [Suspect]
     Indication: DRUG USE FOR UNKNOWN INDICATION
     Dosage: 3.5ML TWICE PER DAY
     Route: 048
     Dates: start: 20080625, end: 20080629

REACTIONS (5)
  - FUNGAL INFECTION [None]
  - MEDICATION ERROR [None]
  - OVERDOSE [None]
  - PRODUCT QUALITY ISSUE [None]
  - WRONG TECHNIQUE IN DRUG USAGE PROCESS [None]
